FAERS Safety Report 9059607 (Version 1)
Quarter: 2013Q1

REPORT INFORMATION
  Report Type: Spontaneous
  Country: US (occurrence: None)
  Receive Date: 20130206
  Receipt Date: 20130206
  Transmission Date: 20140127
  Serious: Yes (Life-Threatening, Hospitalization, Other)
  Sender: FDA-Public Use
  Company Number: None

PATIENT
  Age: 18 Year
  Sex: Female
  Weight: 78.3 kg

DRUGS (1)
  1. ORTHO TRI-CYCLEN [Suspect]
     Indication: ORAL CONTRACEPTION
     Dosage: DAILY  PO
     Route: 048
     Dates: start: 20120801, end: 20130204

REACTIONS (2)
  - Superior sagittal sinus thrombosis [None]
  - Thrombotic stroke [None]
